FAERS Safety Report 8121683-9 (Version None)
Quarter: 2012Q1

REPORT INFORMATION
  Report Type: 
  Country: None (occurrence: None)
  Receive Date: 20120206
  Receipt Date: 20120126
  Transmission Date: 20120608
  Serious: Yes (Hospitalization)
  Sender: FDA-Public Use
  Company Number: USA/USA/12/0 022872

PATIENT
  Age: 69 Year
  Sex: Male
  Weight: 133 kg

DRUGS (3)
  1. LEVOFLOXACIN [Suspect]
     Indication: PRODUCT USED FOR UNKNOWN INDICATION
     Dosage: 750 MG, 1 DAY, ORAL
     Route: 048
  2. DAPTOMYCIN [Suspect]
     Indication: PRODUCT USED FOR UNKNOWN INDICATION
     Dosage: 900 MG, 1 DAY, INTRAVENOUS
     Route: 042
  3. SIMVASTATIN [Suspect]
     Indication: PRODUCT USED FOR UNKNOWN INDICATION
     Dosage: 40 MG, 1 D,

REACTIONS (4)
  - BLOOD CREATININE INCREASED [None]
  - POTENTIATING DRUG INTERACTION [None]
  - BLOOD POTASSIUM INCREASED [None]
  - RHABDOMYOLYSIS [None]
